FAERS Safety Report 17117496 (Version 1)
Quarter: 2019Q4

REPORT INFORMATION
  Report Type: Report from Study
  Country: DE (occurrence: DE)
  Receive Date: 20191205
  Receipt Date: 20191205
  Transmission Date: 20200122
  Serious: Yes (Other)
  Sender: FDA-Public Use
  Company Number: PHHY2015DE005676

PATIENT
  Sex: Female

DRUGS (1)
  1. GILENYA [Suspect]
     Active Substance: FINGOLIMOD HYDROCHLORIDE
     Indication: MULTIPLE SCLEROSIS
     Dosage: UNK UNK, QD
     Route: 048
     Dates: start: 20140716

REACTIONS (8)
  - Neutropenia [Recovered/Resolved]
  - Lymphopenia [Unknown]
  - White blood cell count decreased [Recovered/Resolved]
  - Toothache [Recovered/Resolved]
  - Gamma-glutamyltransferase increased [Unknown]
  - Palpitations [Recovered/Resolved]
  - Leukopenia [Recovered/Resolved]
  - Blood alkaline phosphatase decreased [Recovered/Resolved]

NARRATIVE: CASE EVENT DATE: 20140805
